FAERS Safety Report 4579076-7 (Version None)
Quarter: 2005Q1

REPORT INFORMATION
  Report Type: 
  Country: None (occurrence: None)
  Receive Date: 20050127
  Receipt Date: 20040903
  Transmission Date: 20050727
  Serious: No
  Sender: FDA-Public Use
  Company Number: USA040977412

PATIENT
  Age: 14 Year
  Sex: Male
  Weight: 61 kg

DRUGS (1)
  1. STRATTERA [Suspect]
     Dosage: 80 MG/2 DAY

REACTIONS (1)
  - ACCIDENTAL OVERDOSE [None]
